FAERS Safety Report 4851600-6 (Version None)
Quarter: 2005Q4

REPORT INFORMATION
  Report Type: 
  Country: None (occurrence: None)
  Receive Date: 20051212
  Receipt Date: 20051129
  Transmission Date: 20060501
  Serious: Yes (Other)
  Sender: FDA-Public Use
  Company Number: JP-NOVOPROD-249014

PATIENT
  Age: 0 None
  Sex: Male
  Weight: 60 kg

DRUGS (2)
  1. NOVOSEVEN [Suspect]
     Indication: GASTROINTESTINAL HAEMORRHAGE
     Dosage: 38.4 MG, 8 TIMES QD
     Route: 042
     Dates: start: 20051124
  2. FEIBA [Concomitant]
     Route: 042
     Dates: start: 20051122, end: 20051123

REACTIONS (2)
  - LOCALISED INFECTION [None]
  - MUSCLE HAEMORRHAGE [None]
